FAERS Safety Report 12508776 (Version 1)
Quarter: 2016Q2

REPORT INFORMATION
  Report Type: Report from Study
  Country: BR (occurrence: BR)
  Receive Date: 20160629
  Receipt Date: 20160629
  Transmission Date: 20160815
  Serious: Yes (Death)
  Sender: FDA-Public Use
  Company Number: BR-ROCHE-1785668

PATIENT
  Age: 63 Year
  Sex: Male
  Weight: 57.2 kg

DRUGS (8)
  1. HYDROCHLOROTHIAZIDE. [Concomitant]
     Active Substance: HYDROCHLOROTHIAZIDE
     Indication: HYPERTENSION
  2. METFORMIN [Concomitant]
     Active Substance: METFORMIN HYDROCHLORIDE
     Indication: DIABETES MELLITUS
  3. CARBOPLATIN. [Suspect]
     Active Substance: CARBOPLATIN
     Indication: NON-SMALL CELL LUNG CANCER STAGE IV
     Dosage: AUC=6 FOUR OR SIX 21 DAY CYCLES (DOSAGE TAKEN FROM THE PROTOCOL). ?DATE OF THE MOST RECENT DOSE PRIO
     Route: 042
     Dates: start: 20160524
  4. ATEZOLIZUMAB [Suspect]
     Active Substance: ATEZOLIZUMAB
     Indication: NON-SMALL CELL LUNG CANCER STAGE IV
     Dosage: DATE OF THE MOST RECENT DOSE PRIOR TO AE ONSET: 15/JUN/2016
     Route: 042
     Dates: start: 20160524
  5. ENALAPRIL [Concomitant]
     Active Substance: ENALAPRIL
     Indication: HYPERTENSION
  6. TRAMAL [Concomitant]
     Active Substance: TRAMADOL
     Indication: CHEST PAIN
  7. BEVACIZUMAB [Suspect]
     Active Substance: BEVACIZUMAB
     Indication: NON-SMALL CELL LUNG CANCER STAGE IV
     Dosage: (DOSAGE TAKEN FROM THE PROTOCOL) ?DATE OF THE MOST RECENT DOSE PRIOR TO AE ONSET: 15/JUN/2016 AT 858
     Route: 042
     Dates: start: 20160524
  8. PACLITAXEL. [Suspect]
     Active Substance: PACLITAXEL
     Indication: NON-SMALL CELL LUNG CANCER STAGE IV
     Dosage: (DOSAGE TAKEN FROM THE PROTOCOL) ?DATE OF THE MOST RECENT DOSE PRIOR TO AE ONSET: 15/JUN/2016 AT 333
     Route: 042
     Dates: start: 20160524

REACTIONS (1)
  - Respiratory failure [Fatal]

NARRATIVE: CASE EVENT DATE: 20160621
